FAERS Safety Report 19904124 (Version 1)
Quarter: 2021Q3

REPORT INFORMATION
  Report Type: Spontaneous
  Country: IT (occurrence: IT)
  Receive Date: 20210930
  Receipt Date: 20210930
  Transmission Date: 20211014
  Serious: Yes (Other)
  Sender: FDA-Public Use
  Company Number: IT-ROCHE-2921132

PATIENT
  Age: 64 Year
  Sex: Female

DRUGS (2)
  1. NAB?PACLITAXEL [Suspect]
     Active Substance: PACLITAXEL
     Indication: TRIPLE NEGATIVE BREAST CANCER
     Dosage: DAYS 1, 8, 15 EVERY 28 DAYS
     Route: 065
  2. ATEZOLIZUMAB. [Suspect]
     Active Substance: ATEZOLIZUMAB
     Indication: TRIPLE NEGATIVE BREAST CANCER
     Dosage: DAYS 1, 15 EVERY 28 DAYS
     Route: 065

REACTIONS (5)
  - Hyperglycaemia [Unknown]
  - Breast neoplasm [Unknown]
  - Rash maculo-papular [Recovered/Resolved]
  - Gastrointestinal toxicity [Recovered/Resolved]
  - Diarrhoea [Recovered/Resolved]
